FAERS Safety Report 26070640 (Version 1)
Quarter: 2025Q4

REPORT INFORMATION
  Report Type: Spontaneous
  Country: US (occurrence: US)
  Receive Date: 20251120
  Receipt Date: 20251120
  Transmission Date: 20260119
  Serious: No
  Sender: SANOFI AVENTIS
  Company Number: US-SA-2025SA346391

PATIENT
  Sex: Male
  Weight: 28.98 kg

DRUGS (5)
  1. DUPIXENT [Suspect]
     Active Substance: DUPILUMAB
     Indication: Dermatitis atopic
     Dosage: 200 MG, QOW
     Route: 058
  2. VITAMINS [Concomitant]
     Active Substance: VITAMINS
     Dosage: UNK
  3. HYDROXYZINE HYDROCHLORIDE [Concomitant]
     Active Substance: HYDROXYZINE HYDROCHLORIDE
     Dosage: UNK
  4. MUPIROCIN [Concomitant]
     Active Substance: MUPIROCIN
     Dosage: UNK
  5. A AND D [Concomitant]
     Dosage: UNK

REACTIONS (3)
  - Insomnia [Unknown]
  - Pain in extremity [Unknown]
  - Arthralgia [Unknown]
